FAERS Safety Report 8191378-4 (Version None)
Quarter: 2012Q1

REPORT INFORMATION
  Report Type: 
  Country: None (occurrence: None)
  Receive Date: 20120307
  Receipt Date: 20120224
  Transmission Date: 20120608
  Serious: Yes (Other)
  Sender: FDA-Public Use
  Company Number: US-FRI-1000028687

PATIENT
  Age: 57 Year
  Sex: Female
  Weight: 86.18 kg

DRUGS (1)
  1. VIIBRYD [Suspect]
     Indication: MIGRAINE
     Dosage: 40 MG
     Dates: start: 20111024, end: 20111114

REACTIONS (13)
  - VIOLENCE-RELATED SYMPTOM [None]
  - DEPRESSION [None]
  - NAUSEA [None]
  - SCREAMING [None]
  - SUICIDAL IDEATION [None]
  - ENERGY INCREASED [None]
  - AGITATION [None]
  - OFF LABEL USE [None]
  - RESTLESSNESS [None]
  - LOGORRHOEA [None]
  - INSOMNIA [None]
  - FEELING ABNORMAL [None]
  - HEADACHE [None]
